FAERS Safety Report 8431886-1 (Version None)
Quarter: 2012Q2

REPORT INFORMATION
  Report Type: 
  Country: None (occurrence: None)
  Receive Date: 20120613
  Receipt Date: 20120605
  Transmission Date: 20120825
  Serious: Yes (Other)
  Sender: FDA-Public Use
  Company Number: FR-PFIZER INC-2011205678

PATIENT
  Age: 11 Year
  Sex: Female

DRUGS (10)
  1. DAUNORUBICIN [Concomitant]
     Dosage: UNK
  2. OMEPRAZOLE [Concomitant]
     Dosage: UNK
  3. PREDNISONE [Concomitant]
     Dosage: UNK
  4. ELSPAR [Concomitant]
     Dosage: UNK
  5. AMITRIPTYLINE [Concomitant]
     Dosage: UNK
  6. NALBUPHINE [Concomitant]
     Dosage: UNK
  7. PIPERACILLIN AND TAZOBACTAM [Suspect]
     Indication: FEBRILE NEUTROPENIA
     Dosage: UNK
  8. HYDROXYZINE [Concomitant]
     Dosage: UNK
  9. CYCLOPHOSPHAMIDE [Concomitant]
     Dosage: UNK
  10. VINCRISTINE SULFATE [Interacting]
     Indication: ACUTE LYMPHOCYTIC LEUKAEMIA
     Dosage: UNK

REACTIONS (4)
  - AUTONOMIC NEUROPATHY [None]
  - ILEUS PARALYTIC [None]
  - CHOLESTASIS [None]
  - DRUG INTERACTION [None]
